FAERS Safety Report 4308436-4 (Version None)
Quarter: 2004Q1

REPORT INFORMATION
  Report Type: 
  Country: None (occurrence: None)
  Receive Date: 20040301
  Receipt Date: 20040223
  Transmission Date: 20041129
  Serious: Yes (Other)
  Sender: FDA-Public Use
  Company Number: US-BRISTOL-MYERS SQUIBB COMPANY-12519948

PATIENT
  Age: 46 Year
  Sex: Female

DRUGS (4)
  1. SERZONE [Suspect]
     Route: 048
     Dates: end: 20020101
  2. PREMARIN [Concomitant]
  3. SYNTHROID [Concomitant]
  4. ZYRTEC [Concomitant]

REACTIONS (3)
  - BILIARY CIRRHOSIS PRIMARY [None]
  - CONJUNCTIVITIS [None]
  - SCLERODERMA [None]
